FAERS Safety Report 9729186 (Version 1)
Quarter: 2013Q4

REPORT INFORMATION
  Report Type: Spontaneous
  Country: US (occurrence: US)
  Receive Date: 20131204
  Receipt Date: 20131204
  Transmission Date: 20140711
  Serious: No
  Sender: FDA-Public Use
  Company Number: US-BAYER-2013-147186

PATIENT
  Sex: Female

DRUGS (1)
  1. OCELLA [Suspect]
     Route: 048

REACTIONS (2)
  - Abdominal distension [None]
  - Abdominal discomfort [None]
